FAERS Safety Report 5307203-2 (Version None)
Quarter: 2007Q2

REPORT INFORMATION
  Report Type: 
  Country: None (occurrence: None)
  Receive Date: 20070425
  Receipt Date: 20070306
  Transmission Date: 20071010
  Serious: No
  Sender: FDA-Public Use
  Company Number: US-AMGEN-US213742

PATIENT
  Age: 70 Year
  Sex: Male

DRUGS (4)
  1. VECTIBIX [Suspect]
     Indication: COLORECTAL CANCER
     Route: 065
     Dates: start: 20070220, end: 20070301
  2. FLUOROURACIL [Concomitant]
     Route: 065
     Dates: start: 20070220
  3. IRINOTECAN HCL [Concomitant]
     Route: 065
  4. LEUCOVORIN CALCIUM [Concomitant]
     Route: 065

REACTIONS (4)
  - ERYTHEMA [None]
  - RASH PUSTULAR [None]
  - SKIN TOXICITY [None]
  - SKIN ULCER [None]
